FAERS Safety Report 4551453-X (Version None)
Quarter: 2005Q1

REPORT INFORMATION
  Report Type: 
  Country: None (occurrence: None)
  Receive Date: 20050107
  Receipt Date: 20041223
  Transmission Date: 20050727
  Serious: Yes (Hospitalization)
  Sender: FDA-Public Use
  Company Number: S04-FRA-08300-02

PATIENT
  Sex: Male

DRUGS (6)
  1. AOTAL(ACAMPROSATE) [Suspect]
     Dates: start: 20040102, end: 20040102
  2. AOTAL (ACAMPROSATE) [Suspect]
     Dates: start: 20040329, end: 20040329
  3. MEPRONIZINE [Suspect]
     Dosage: 6 TABLET QD TRANSPLACENTAL
     Route: 064
     Dates: start: 20010105
  4. ZYPREXA [Suspect]
     Dosage: 10 MG QD TRANSPLACENTAL
     Route: 064
     Dates: start: 20010105
  5. LYSANXIA (PRAZEPAM) [Suspect]
     Dosage: 80 MG QD TRANSPLACENTAL
     Route: 064
     Dates: start: 20010105
  6. EFFEXOR [Suspect]
     Dosage: 400 MG QD PO
     Route: 048
     Dates: start: 20010105

REACTIONS (3)
  - DRUG EXPOSURE DURING PREGNANCY [None]
  - HYPOSPADIAS [None]
  - RENAL DISORDER [None]
